FAERS Safety Report 4888551-7 (Version None)
Quarter: 2005Q4

REPORT INFORMATION
  Report Type: 
  Country: None (occurrence: None)
  Receive Date: 20051215
  Receipt Date: 20050413
  Transmission Date: 20060501
  Serious: Yes (Other)
  Sender: FDA-Public Use
  Company Number: 2005022328

PATIENT
  Age: 58 Year
  Sex: Female
  Weight: 58.9676 kg

DRUGS (4)
  1. BEXTRA [Suspect]
     Indication: LIPECTOMY
     Dosage: 40 MG (20 MG,2 IN 1 D),ORAL
     Route: 048
     Dates: start: 20041203, end: 20041215
  2. ANAESTHETICS, GENERAL (ANAESTHETICS, GENERAL) [Suspect]
     Indication: LIPOSUCTION
     Dates: start: 20040101, end: 20040101
  3. ANTITHROMBOTIC AGENTS (ANTITHROMBOTIC AGENTS) [Concomitant]
  4. ANTIBIOTICS (ANTIBIOTICS) [Concomitant]

REACTIONS (21)
  - ASCITES [None]
  - BLOOD PRESSURE DIASTOLIC [None]
  - DISTURBANCE IN ATTENTION [None]
  - DRUG INTERACTION [None]
  - EAR CONGESTION [None]
  - EAR PAIN [None]
  - EYE DISORDER [None]
  - EYE PAIN [None]
  - FEELING ABNORMAL [None]
  - HEADACHE [None]
  - HYPERTENSION [None]
  - HYPOTENSION [None]
  - MACULAR HOLE [None]
  - MALAISE [None]
  - NECK PAIN [None]
  - RETINAL TEAR [None]
  - SINUSITIS [None]
  - THROMBOSIS [None]
  - TINNITUS [None]
  - VISION BLURRED [None]
  - VISUAL DISTURBANCE [None]
